FAERS Safety Report 23604881 (Version 1)
Quarter: 2024Q1

REPORT INFORMATION
  Report Type: Spontaneous
  Country: IT (occurrence: IT)
  Receive Date: 20240307
  Receipt Date: 20240307
  Transmission Date: 20240410
  Serious: Yes (Hospitalization)
  Sender: FDA-Public Use
  Company Number: IT-SUN PHARMACEUTICAL INDUSTRIES LTD-2024RR-434415

PATIENT
  Age: 57 Year
  Sex: Male

DRUGS (2)
  1. OLANZAPINE [Suspect]
     Active Substance: OLANZAPINE
     Indication: Product used for unknown indication
     Dosage: 15 MILLIGRAM
     Route: 048
     Dates: start: 20231113, end: 20231113
  2. QUETIAPINE [Suspect]
     Active Substance: QUETIAPINE
     Indication: Product used for unknown indication
     Dosage: 650 MILLIGRAM
     Route: 048
     Dates: start: 20231113, end: 20231113

REACTIONS (3)
  - Photophobia [Recovering/Resolving]
  - Drug abuse [Unknown]
  - Miosis [Unknown]

NARRATIVE: CASE EVENT DATE: 20231113
